FAERS Safety Report 7768305-4 (Version None)
Quarter: 2011Q3

REPORT INFORMATION
  Report Type: 
  Country: None (occurrence: None)
  Receive Date: 20110919
  Receipt Date: 20110906
  Transmission Date: 20111222
  Serious: Yes (Hospitalization, Other)
  Sender: FDA-Public Use
  Company Number: JPI-P-016969

PATIENT
  Age: 75 Year
  Sex: Female
  Weight: 48.9885 kg

DRUGS (7)
  1. NIFEDIPINE [Concomitant]
  2. XYREM [Suspect]
     Indication: NARCOLEPSY
     Dosage: 4.5 GM (2.25 GM, 2 IN 1 D), ORAL  6 GM (3 GM, 2 IN 1 D) , ORAL
     Route: 048
     Dates: start: 20030304, end: 20030526
  3. XYREM [Suspect]
     Indication: NARCOLEPSY
     Dosage: 4.5 GM (2.25 GM, 2 IN 1 D), ORAL  6 GM (3 GM, 2 IN 1 D) , ORAL
     Route: 048
     Dates: start: 20030527
  4. VITAMIN D [Concomitant]
  5. ALENDRONATE SODIUM [Concomitant]
  6. CALCIUM CARBONATE [Concomitant]
  7. MODAFINIL [Concomitant]

REACTIONS (2)
  - FALL [None]
  - FEMUR FRACTURE [None]
